FAERS Safety Report 8602227-1 (Version None)
Quarter: 2012Q3

REPORT INFORMATION
  Report Type: 
  Country: None (occurrence: None)
  Receive Date: 20120817
  Receipt Date: 20120816
  Transmission Date: 20120928
  Serious: Yes (Other)
  Sender: FDA-Public Use
  Company Number: US-PFIZER INC-2012056292

PATIENT
  Age: 70 Year
  Sex: Male
  Weight: 86.168 kg

DRUGS (7)
  1. MULTI-VITAMINS [Concomitant]
     Dosage: UNK
  2. NAPROXEN SODIUM [Suspect]
     Dosage: UNK
  3. DORZOLAMIDE HYDROCHLORIDE AND TIMOLOL MALEATE [Suspect]
     Indication: INTRAOCULAR PRESSURE INCREASED
     Dosage: 1 GTT, DAILY
     Dates: start: 20120228, end: 20120229
  4. TIMOLOL [Concomitant]
     Indication: GLAUCOMA
     Dosage: 1 GTT, DAILY
  5. CELEBREX [Suspect]
     Indication: MUSCLE SWELLING
     Dosage: 200 MG, DAILY
     Dates: start: 20120220
  6. LUMIGAN [Concomitant]
     Dosage: 1 GTT, DAILY
  7. CELEBREX [Suspect]
     Indication: MUSCLE STRAIN

REACTIONS (2)
  - HYPERSENSITIVITY [None]
  - INTRAOCULAR PRESSURE INCREASED [None]
